FAERS Safety Report 25950985 (Version 1)
Quarter: 2025Q4

REPORT INFORMATION
  Report Type: Spontaneous
  Country: EU (occurrence: EU)
  Receive Date: 20251023
  Receipt Date: 20251023
  Transmission Date: 20260118
  Serious: Yes (Other)
  Sender: TEVA
  Company Number: None

PATIENT
  Age: 44 Year
  Sex: Female

DRUGS (4)
  1. OXALIPLATIN [Suspect]
     Active Substance: OXALIPLATIN
     Indication: Gastric cancer
     Dosage: NOT AVAILABLE
     Route: 042
     Dates: start: 20250127, end: 20250317
  2. LEUCOVORIN [Suspect]
     Active Substance: LEUCOVORIN\LEUCOVORIN CALCIUM
     Indication: Gastric cancer
     Dosage: NOT AVAILABLE
     Route: 042
     Dates: start: 20250127, end: 20250317
  3. DOCETAXEL [Suspect]
     Active Substance: DOCETAXEL
     Indication: Gastric cancer
     Dosage: NOT AVAILABLE
     Route: 042
     Dates: start: 20250127, end: 20250317
  4. FLUOROURACIL [Suspect]
     Active Substance: FLUOROURACIL
     Indication: Gastric cancer
     Dosage: NOT AVAILABLE, 5-FLUOROURACIL
     Route: 042
     Dates: start: 20250127, end: 20250317

REACTIONS (2)
  - Neutropenia [Recovered/Resolved]
  - Asthenia [Unknown]

NARRATIVE: CASE EVENT DATE: 20250221
